FAERS Safety Report 17578780 (Version 3)
Quarter: 2020Q2

REPORT INFORMATION
  Report Type: Report from Study
  Country: None (occurrence: JP)
  Receive Date: 20200325
  Receipt Date: 20200624
  Transmission Date: 20200713
  Serious: Yes (Hospitalization)
  Sender: FDA-Public Use
  Company Number: JP-ABBVIE-19S-087-2796233-00

PATIENT
  Age: 72 Year
  Sex: Female
  Weight: 37 kg

DRUGS (11)
  1. DUODOPA [Suspect]
     Active Substance: CARBIDOPA\LEVODOPA
     Indication: PARKINSON^S DISEASE
     Dosage: MD: 13 ML?CD: 3.6 ML/HR ? 16 HRS
     Route: 050
     Dates: start: 20190513, end: 20190514
  2. LUBIPROSTONE [Concomitant]
     Active Substance: LUBIPROSTONE
     Indication: PRODUCT USED FOR UNKNOWN INDICATION
     Route: 048
     Dates: start: 20190511
  3. LOXOPROFEN SODIUM HYDRATE [Concomitant]
     Active Substance: LOXOPROFEN SODIUM DIHYDRATE
     Indication: PRODUCT USED FOR UNKNOWN INDICATION
     Dosage: PRN (WHEN LOW BACK PAIN DEVELOPED)
     Route: 048
     Dates: start: 20190605
  4. DUODOPA [Suspect]
     Active Substance: CARBIDOPA\LEVODOPA
     Dosage: MD: 13 ML?CD: 3.5 ML/HR ? 16 HRS
     Route: 050
     Dates: start: 20190514, end: 20190516
  5. ROTIGOTINE [Concomitant]
     Active Substance: ROTIGOTINE
     Indication: PARKINSON^S DISEASE
     Route: 062
     Dates: start: 20190511, end: 20190605
  6. ROTIGOTINE [Concomitant]
     Active Substance: ROTIGOTINE
     Route: 062
     Dates: start: 20190606
  7. MOSAPRIDE CITRATE HYDRATE [Concomitant]
     Active Substance: MOSAPRIDE CITRATE DIHYDRATE
     Indication: PRODUCT USED FOR UNKNOWN INDICATION
     Route: 048
     Dates: end: 20190530
  8. DILTIAZEM HYDROCHLORIDE. [Concomitant]
     Active Substance: DILTIAZEM HYDROCHLORIDE
     Indication: PRODUCT USED FOR UNKNOWN INDICATION
     Route: 048
     Dates: end: 20190528
  9. CARCOPA [Concomitant]
     Active Substance: CARBIDOPA\LEVODOPA
     Indication: PARKINSON^S DISEASE
     Route: 048
     Dates: start: 20190516, end: 20190528
  10. DILTIAZEM HYDROCHLORIDE. [Concomitant]
     Active Substance: DILTIAZEM HYDROCHLORIDE
     Route: 048
     Dates: start: 20190529
  11. DUODOPA [Suspect]
     Active Substance: CARBIDOPA\LEVODOPA
     Dosage: MD: 11 ML?CD: 3.5 ML/HR ? 16 HRS?ED: 1.0 ML/UNIT ? 1 TIME
     Route: 050
     Dates: start: 20190528, end: 20191015

REACTIONS (9)
  - Medical device discomfort [Recovered/Resolved]
  - Speech disorder [Unknown]
  - Confusional state [Unknown]
  - Stoma site discharge [Recovered/Resolved]
  - Mobility decreased [Unknown]
  - Tremor [Unknown]
  - Breast cancer female [Unknown]
  - Dyskinesia [Recovered/Resolved]
  - Dyskinesia [Unknown]

NARRATIVE: CASE EVENT DATE: 20190514
